FAERS Safety Report 6063943-1 (Version None)
Quarter: 2009Q1

REPORT INFORMATION
  Report Type: 
  Country: None (occurrence: None)
  Receive Date: 20090204
  Receipt Date: 20090123
  Transmission Date: 20090719
  Serious: Yes (Other)
  Sender: FDA-Public Use
  Company Number: PHHY2009CA01896

PATIENT

DRUGS (1)
  1. DIOVAN [Suspect]
     Dosage: 160 MG DAILY
     Route: 048

REACTIONS (1)
  - CARDIAC FAILURE [None]
